FAERS Safety Report 24015415 (Version 1)
Quarter: 2024Q2

REPORT INFORMATION
  Report Type: Spontaneous
  Country: US (occurrence: US)
  Receive Date: 20240626
  Receipt Date: 20240626
  Transmission Date: 20240715
  Serious: No
  Sender: FDA-Public Use
  Company Number: US-ELI_LILLY_AND_COMPANY-US202406017114

PATIENT
  Age: 72 Year
  Sex: Female

DRUGS (5)
  1. ZEPBOUND [Suspect]
     Active Substance: TIRZEPATIDE
     Indication: Type 2 diabetes mellitus
     Dosage: 15 MG, OTHER (TWO PENS OF 7.5 MG TO MAKE 15 MG DOSE)
     Route: 058
  2. ZEPBOUND [Suspect]
     Active Substance: TIRZEPATIDE
     Indication: Type 2 diabetes mellitus
     Dosage: 15 MG, OTHER (TWO PENS OF 7.5 MG TO MAKE 15 MG DOSE)
     Route: 058
  3. ZEPBOUND [Suspect]
     Active Substance: TIRZEPATIDE
     Indication: Type 2 diabetes mellitus
     Dosage: 15 MG, OTHER (TWO PENS OF 7.5 MG TO MAKE 15 MG DOSE)
     Route: 058
  4. ZEPBOUND [Suspect]
     Active Substance: TIRZEPATIDE
     Indication: Type 2 diabetes mellitus
     Dosage: 15 MG, OTHER (TWO PENS OF 7.5 MG TO MAKE 15 MG DOSE)
     Route: 058
  5. ZEPBOUND [Suspect]
     Active Substance: TIRZEPATIDE
     Indication: Type 2 diabetes mellitus
     Dosage: 15 MG, OTHER (TWO PENS OF 7.5 MG TO MAKE 15 MG DOSE)
     Route: 058

REACTIONS (3)
  - Off label use [Unknown]
  - Drug ineffective [Unknown]
  - Blood glucose increased [Unknown]
